FAERS Safety Report 12103637 (Version 1)
Quarter: 2016Q1

REPORT INFORMATION
  Report Type: Other
  Country: US (occurrence: US)
  Receive Date: 20160222
  Receipt Date: 20160222
  Transmission Date: 20160526
  Serious: No
  Sender: FDA-Public Use
  Company Number: US-ACORDA-ACO_113520_2015

PATIENT
  Sex: Male

DRUGS (2)
  1. AMPYRA [Suspect]
     Active Substance: DALFAMPRIDINE
     Indication: PRODUCT USED FOR UNKNOWN INDICATION
     Dosage: 10 MG, BID
     Route: 048
     Dates: start: 2012
  2. TYSABRI [Suspect]
     Active Substance: NATALIZUMAB
     Indication: MULTIPLE SCLEROSIS
     Dosage: UNK
     Route: 065
     Dates: start: 2012

REACTIONS (8)
  - Walking aid user [Unknown]
  - Wheelchair user [Recovered/Resolved]
  - Musculoskeletal stiffness [Unknown]
  - Vision blurred [Recovered/Resolved]
  - Muscular weakness [Unknown]
  - Activities of daily living impaired [Unknown]
  - Fatigue [Unknown]
  - JC virus test positive [Unknown]
